FAERS Safety Report 5046422-X (Version None)
Quarter: 2006Q3

REPORT INFORMATION
  Report Type: 
  Country: None (occurrence: None)
  Receive Date: 20060710
  Receipt Date: 20040629
  Transmission Date: 20061208
  Serious: Yes (Hospitalization)
  Sender: FDA-Public Use
  Company Number: US-GLAXOSMITHKLINE-A0517403A

PATIENT
  Sex: Female

DRUGS (1)
  1. PAXIL [Suspect]
     Indication: DEPRESSION
     Route: 048
     Dates: start: 20020101

REACTIONS (21)
  - AFFECT LABILITY [None]
  - AGITATION [None]
  - ANGER [None]
  - ANXIETY [None]
  - BIPOLAR DISORDER [None]
  - CONFUSIONAL STATE [None]
  - DISABILITY [None]
  - DISTURBANCE IN ATTENTION [None]
  - DIZZINESS [None]
  - DRUG WITHDRAWAL SYNDROME [None]
  - FEAR [None]
  - INSOMNIA [None]
  - MANIA [None]
  - MEMORY IMPAIRMENT [None]
  - OBSESSIVE-COMPULSIVE DISORDER [None]
  - PARANOIA [None]
  - PERFORMANCE STATUS DECREASED [None]
  - PSYCHOMOTOR HYPERACTIVITY [None]
  - SPEECH DISORDER [None]
  - THINKING ABNORMAL [None]
  - VERTIGO [None]
